FAERS Safety Report 8916305 (Version 1)
Quarter: 2012Q4

REPORT INFORMATION
  Report Type: 
  Country: CZ (occurrence: CZ)
  Receive Date: 20121120
  Receipt Date: 20121120
  Transmission Date: 20130627
  Serious: Yes (Hospitalization)
  Sender: FDA-Public Use
  Company Number: PHHY2012CZ105023

PATIENT
  Age: 74 Year
  Sex: Female
  Weight: 49 kg

DRUGS (5)
  1. FOLINIC ACID [Suspect]
     Dosage: 600 mg, Daily
     Route: 051
  2. 5-FLUOROURACIL [Suspect]
     Dosage: 4350 mg, BIW
     Route: 051
     Dates: start: 20120903, end: 20121001
  3. KALNORMIN [Concomitant]
     Dosage: 2 DF, Daily
  4. TRITTICO [Concomitant]
  5. KORYLAN [Concomitant]

REACTIONS (6)
  - Neurotoxicity [Recovered/Resolved]
  - Encephalopathy [Recovered/Resolved]
  - Delirium [Recovered/Resolved]
  - Dyskinesia [Recovered/Resolved]
  - Aphasia [Recovered/Resolved]
  - Headache [Unknown]
